FAERS Safety Report 19105289 (Version 7)
Quarter: 2021Q3

REPORT INFORMATION
  Report Type: Spontaneous
  Country: JP (occurrence: JP)
  Receive Date: 20210408
  Receipt Date: 20210702
  Transmission Date: 20211014
  Serious: Yes (Life-Threatening, Other)
  Sender: FDA-Public Use
  Company Number: JP-BRISTOL-MYERS SQUIBB COMPANY-BMS-2021-021722

PATIENT
  Age: 36 Year
  Sex: Female
  Weight: 54 kg

DRUGS (27)
  1. PACLITAXEL. [Suspect]
     Active Substance: PACLITAXEL
     Indication: NON-SMALL CELL LUNG CANCER RECURRENT
     Dosage: 320 MILLIGRAM, Q3WK
     Route: 042
     Dates: start: 20210216, end: 20210216
  2. OXYCONTIN TR [Concomitant]
     Active Substance: OXYCODONE HYDROCHLORIDE
     Indication: LUNG ADENOCARCINOMA
  3. CARBOPLATIN. [Suspect]
     Active Substance: CARBOPLATIN
     Indication: NON-SMALL CELL LUNG CANCER RECURRENT
     Dosage: 600 MILLIGRAM, Q3WK
     Route: 042
     Dates: start: 20210216, end: 20210216
  4. PACLITAXEL. [Suspect]
     Active Substance: PACLITAXEL
     Indication: LUNG ADENOCARCINOMA
     Dosage: UNK UNK, Q3WK
     Route: 042
     Dates: start: 20210309, end: 20210309
  5. YERVOY [Suspect]
     Active Substance: IPILIMUMAB
     Indication: LUNG ADENOCARCINOMA
  6. CARBOPLATIN. [Suspect]
     Active Substance: CARBOPLATIN
     Indication: LUNG ADENOCARCINOMA
     Dosage: UNK, Q3WK
     Route: 042
     Dates: start: 20210309, end: 20210309
  7. DECADRON [Suspect]
     Active Substance: DEXAMETHASONE
     Indication: PROPHYLAXIS OF NAUSEA AND VOMITING
     Dosage: 12 MILLIGRAM, ONE TIME DOSE
     Route: 041
     Dates: start: 20210216, end: 20210216
  8. MAGMITT [Concomitant]
     Active Substance: MAGNESIUM OXIDE
     Indication: PROPHYLAXIS
     Dosage: 250 MILLIGRAM, TID
     Route: 048
     Dates: start: 20210215
  9. LOXOPROFEN SODIUM HYDRATE [Concomitant]
     Active Substance: LOXOPROFEN SODIUM DIHYDRATE
     Indication: PROPHYLAXIS
     Dosage: 60 MILLIGRAM, TID
     Route: 048
     Dates: start: 20210215
  10. ALFAROL [Concomitant]
     Active Substance: ALFACALCIDOL
     Indication: PROPHYLAXIS
     Dosage: 0.5 MICROGRAM, QD
     Route: 048
     Dates: start: 20210216
  11. OPDIVO [Suspect]
     Active Substance: NIVOLUMAB
     Indication: LUNG ADENOCARCINOMA
  12. PROEMEND [Suspect]
     Active Substance: FOSAPREPITANT
     Indication: PROPHYLAXIS OF NAUSEA AND VOMITING
     Dosage: 150 MILLIGRAM, ONE TIME DOSE
     Route: 041
     Dates: start: 20210216, end: 20210216
  13. PROEMEND [Suspect]
     Active Substance: FOSAPREPITANT
     Indication: PREMEDICATION
     Dosage: UNK
     Route: 041
     Dates: start: 20210309, end: 20210309
  14. FAMOTIDINE. [Concomitant]
     Active Substance: FAMOTIDINE
     Indication: PROPHYLAXIS
     Dosage: 20 MILLIGRAM, ONE TIME DOSE
     Route: 042
     Dates: start: 20210216, end: 20210216
  15. G LASTA [Concomitant]
     Active Substance: PEGFILGRASTIM
     Indication: PROPHYLAXIS
     Dosage: 3.6 MILLIGRAM, ONE TIME DOSE
     Route: 058
     Dates: start: 20210217, end: 20210217
  16. ASPARA?CA [Concomitant]
     Active Substance: CALCIUM ASPARTATE
     Indication: PROPHYLAXIS
     Dosage: 400 MILLIGRAM, TID
     Route: 048
     Dates: start: 20210216
  17. OXYCONTIN TR [Concomitant]
     Active Substance: OXYCODONE HYDROCHLORIDE
     Indication: NON-SMALL CELL LUNG CANCER
     Dosage: 10 MILLIGRAM, BID
     Route: 048
     Dates: start: 20210223
  18. DECADRON [Suspect]
     Active Substance: DEXAMETHASONE
     Indication: PREMEDICATION
     Dosage: UNK
     Route: 041
     Dates: start: 20210309, end: 20210309
  19. YERVOY [Suspect]
     Active Substance: IPILIMUMAB
     Indication: NON-SMALL CELL LUNG CANCER
     Dosage: 50 MILLIGRAM, ONE TIME DOSE, Q6W
     Route: 041
     Dates: start: 20210216, end: 20210216
  20. ALOXI [Suspect]
     Active Substance: PALONOSETRON HYDROCHLORIDE
     Indication: PROPHYLAXIS OF NAUSEA AND VOMITING
     Dosage: 0.75 MILLIGRAM, ONE TIME DOSE
     Route: 041
     Dates: start: 20210216, end: 20210216
  21. ALOXI [Suspect]
     Active Substance: PALONOSETRON HYDROCHLORIDE
     Indication: PREMEDICATION
     Dosage: 0.75 UNITS NOS
     Route: 041
     Dates: start: 20210309, end: 20210309
  22. RANMARK [Concomitant]
     Active Substance: DENOSUMAB
     Indication: METASTASES TO BONE
     Dosage: 120 MILLIGRAM
     Route: 058
     Dates: start: 20210217
  23. NEXIUM [Concomitant]
     Active Substance: ESOMEPRAZOLE MAGNESIUM
     Indication: PROPHYLAXIS
     Dosage: 20 MILLIGRAM, QD
     Route: 048
     Dates: start: 20210215
  24. TOARASET [Concomitant]
     Active Substance: ACETAMINOPHEN\TRAMADOL HYDROCHLORIDE
     Indication: PROPHYLAXIS
     Dosage: 1 DOSAGE FORM, QID
     Route: 048
     Dates: start: 20210215, end: 20210222
  25. GOSHAJINKIGAN [Concomitant]
     Active Substance: HERBALS
     Indication: PROPHYLAXIS
     Dosage: 2.5 GRAM, TID
     Route: 048
     Dates: start: 20210216
  26. OPDIVO [Suspect]
     Active Substance: NIVOLUMAB
     Indication: NON-SMALL CELL LUNG CANCER
     Dosage: 360 MILLIGRAM, ONE TIME DOSE Q3W
     Route: 041
     Dates: start: 20210216, end: 20210216
  27. POLARAMINE [Concomitant]
     Active Substance: DEXCHLORPHENIRAMINE MALEATE
     Indication: PROPHYLAXIS
     Dosage: 5 MILLIGRAM, ONE TIME DOSE
     Route: 042
     Dates: start: 20210216, end: 20210216

REACTIONS (3)
  - Hepatic function abnormal [Recovered/Resolved]
  - Anaphylactic shock [Recovered/Resolved]
  - Rash [Recovered/Resolved]

NARRATIVE: CASE EVENT DATE: 20210220
